FAERS Safety Report 9213151 (Version 2)
Quarter: 2013Q2

REPORT INFORMATION
  Report Type: Spontaneous
  Country: US (occurrence: US)
  Receive Date: 20130405
  Receipt Date: 20130506
  Transmission Date: 20140414
  Serious: No
  Sender: FDA-Public Use
  Company Number: US-PFIZER INC-2013104540

PATIENT
  Sex: Female

DRUGS (2)
  1. HYDROXYZINE HYDROCHLORIDE [Suspect]
     Dosage: UNK
     Dates: start: 20130126
  2. BENADRYL [Suspect]
     Dosage: UNK
     Dates: start: 201301

REACTIONS (2)
  - Urticaria [Recovered/Resolved]
  - Muscle spasms [Recovered/Resolved]
